FAERS Safety Report 14516519 (Version 2)
Quarter: 2018Q2

REPORT INFORMATION
  Report Type: Spontaneous
  Country: MA (occurrence: MA)
  Receive Date: 20180212
  Receipt Date: 20180402
  Transmission Date: 20180711
  Serious: Yes (Hospitalization)
  Sender: FDA-Public Use
  Company Number: MA-SUN PHARMACEUTICAL INDUSTRIES LTD-2018R1-162636

PATIENT
  Age: 17 Year
  Sex: Male
  Weight: 55 kg

DRUGS (2)
  1. PREDNISOLONE. [Suspect]
     Active Substance: PREDNISOLONE
     Indication: PRODUCT USED FOR UNKNOWN INDICATION
     Route: 065
  2. FUROSEMIDE. [Suspect]
     Active Substance: FUROSEMIDE
     Indication: PRODUCT USED FOR UNKNOWN INDICATION
     Dosage: 1 G, DAILY
     Route: 065

REACTIONS (5)
  - Metabolic alkalosis [Recovering/Resolving]
  - Hypokalaemia [Recovering/Resolving]
  - Rhabdomyolysis [Recovered/Resolved]
  - Nephrotic syndrome [Recovering/Resolving]
  - Acute kidney injury [Recovering/Resolving]
